FAERS Safety Report 8902008 (Version 1)
Quarter: 2012Q4

REPORT INFORMATION
  Report Type: 
  Country: DE (occurrence: DE)
  Receive Date: 20121112
  Receipt Date: 20121112
  Transmission Date: 20130627
  Serious: Yes (Hospitalization)
  Sender: FDA-Public Use
  Company Number: DE-ELI_LILLY_AND_COMPANY-DE201211000443

PATIENT
  Age: 53 Year
  Sex: Female

DRUGS (5)
  1. FORSTEO [Suspect]
     Indication: OSTEOPOROSIS
     Dosage: UNK, qod
     Route: 058
     Dates: start: 20110812
  2. CORTISONE [Concomitant]
  3. VITAMIN D [Concomitant]
  4. AMLODIPIN                          /00972401/ [Concomitant]
  5. KALIUM [Concomitant]

REACTIONS (4)
  - Syncope [Unknown]
  - Hand fracture [Not Recovered/Not Resolved]
  - Oedema peripheral [Not Recovered/Not Resolved]
  - Inappropriate schedule of drug administration [Not Recovered/Not Resolved]
